FAERS Safety Report 4385861-7 (Version None)
Quarter: 2004Q2

REPORT INFORMATION
  Report Type: 
  Country: None (occurrence: None)
  Receive Date: 20040628
  Receipt Date: 20040504
  Transmission Date: 20050107
  Serious: Yes (Death, Hospitalization)
  Sender: FDA-Public Use
  Company Number: GB-BRISTOL-MYERS SQUIBB COMPANY-12578555

PATIENT
  Age: 68 Year
  Sex: Male

DRUGS (6)
  1. DAIVONEX OINTMENT [Suspect]
     Indication: PSORIASIS
     Dosage: 8-10 G DAILY; THERAPY DISCONTINUED 09-DEC-91 AND RESTARTED 12-DEC-91
     Route: 061
     Dates: start: 19910723
  2. HYDROXYZINE [Concomitant]
     Indication: PRURITUS
     Dates: start: 19911105
  3. NAPROSYN [Concomitant]
     Dates: start: 19911107
  4. INDOCIN [Concomitant]
     Dates: start: 19911210
  5. NIFEDIPINE [Concomitant]
     Dates: start: 19911210
  6. QUININE SULFATE [Concomitant]
     Dosage: AT NIGHT
     Dates: start: 19911209

REACTIONS (2)
  - HYPERCALCAEMIA [None]
  - MYOCARDIAL INFARCTION [None]
